FAERS Safety Report 14859541 (Version 1)
Quarter: 2018Q2

REPORT INFORMATION
  Report Type: Spontaneous
  Country: US (occurrence: US)
  Receive Date: 20180508
  Receipt Date: 20180508
  Transmission Date: 20180711
  Serious: No
  Sender: FDA-Public Use
  Company Number: US-PFIZER INC-2017483691

PATIENT
  Sex: Female
  Weight: 119.2 kg

DRUGS (3)
  1. DOCETAXEL. [Suspect]
     Active Substance: DOCETAXEL
     Indication: BREAST CANCER FEMALE
     Dosage: 165 MG, CYCLIC (56.25 MG/M2 EVERY THREE WEEKS; NUMBER OF CYCLES: 17)
     Dates: start: 20120326, end: 20130614
  2. TAXOTERE [Suspect]
     Active Substance: DOCETAXEL
     Indication: BREAST CANCER FEMALE
     Dosage: 165 MG, CYCLIC (56.25 MG/M2 EVERY THREE WEEKS; NUMBER OF CYCLES: 17)
     Dates: start: 20120326, end: 20130614
  3. PARAPLATIN [Concomitant]
     Active Substance: CARBOPLATIN
     Dosage: UNK

REACTIONS (2)
  - Madarosis [Unknown]
  - Alopecia [Not Recovered/Not Resolved]
